FAERS Safety Report 20865965 (Version 2)
Quarter: 2022Q2

REPORT INFORMATION
  Report Type: Report from Study
  Country: CN (occurrence: CN)
  Receive Date: 20220524
  Receipt Date: 20220607
  Transmission Date: 20220721
  Serious: Yes (Hospitalization)
  Sender: FDA-Public Use
  Company Number: CN-BRISTOL-MYERS SQUIBB COMPANY-2022-041561

PATIENT
  Age: 66 Year
  Sex: Male

DRUGS (11)
  1. NIVOLUMAB [Suspect]
     Active Substance: NIVOLUMAB
     Indication: Non-small cell lung cancer
     Dosage: 12 MG PO QD
     Route: 042
     Dates: start: 20210208, end: 20220504
  2. CATEQUENTINIB [Suspect]
     Active Substance: CATEQUENTINIB
     Indication: Non-small cell lung cancer
     Dosage: 12 MG PO QD WAS TAKEN FOR 2 WEEKS AND STOPPED FOR 1 WEEK
     Route: 042
     Dates: start: 20210208, end: 20220504
  3. RAVULIZUMAB [Suspect]
     Active Substance: RAVULIZUMAB
     Indication: Non-small cell lung cancer
     Route: 065
     Dates: start: 20210208, end: 20220222
  4. RAVULIZUMAB [Suspect]
     Active Substance: RAVULIZUMAB
     Route: 065
     Dates: start: 20210301, end: 20210315
  5. RAVULIZUMAB [Suspect]
     Active Substance: RAVULIZUMAB
     Route: 065
     Dates: start: 20210322, end: 20210405
  6. RAVULIZUMAB [Suspect]
     Active Substance: RAVULIZUMAB
     Route: 065
     Dates: start: 20210412, end: 20210426
  7. RAVULIZUMAB [Suspect]
     Active Substance: RAVULIZUMAB
     Route: 065
     Dates: start: 20210412, end: 20210426
  8. CEFDINIR [Concomitant]
     Active Substance: CEFDINIR
     Indication: Product used for unknown indication
     Route: 048
     Dates: start: 20220523
  9. loxolprofen [Concomitant]
     Indication: Product used for unknown indication
     Route: 048
     Dates: start: 20220523
  10. METHYLPREDNISOLONE [Concomitant]
     Active Substance: METHYLPREDNISOLONE
     Indication: Product used for unknown indication
     Route: 048
     Dates: start: 20220523
  11. METHYLCOBALAMIN [Concomitant]
     Active Substance: METHYLCOBALAMIN
     Indication: Product used for unknown indication
     Route: 048
     Dates: start: 20220523

REACTIONS (3)
  - Spondylitic myelopathy [Recovering/Resolving]
  - Rash [Unknown]
  - Oedema peripheral [Unknown]

NARRATIVE: CASE EVENT DATE: 20220423
